FAERS Safety Report 4643732-2 (Version None)
Quarter: 2005Q2

REPORT INFORMATION
  Report Type: 
  Country: None (occurrence: None)
  Receive Date: 20050425
  Receipt Date: 20050412
  Transmission Date: 20051028
  Serious: Yes (Hospitalization, Other)
  Sender: FDA-Public Use
  Company Number: 200513450GDDC

PATIENT
  Age: 80 Year
  Sex: Male

DRUGS (14)
  1. RILUTEK [Suspect]
     Indication: AMYOTROPHIC LATERAL SCLEROSIS
     Route: 048
     Dates: start: 20050308, end: 20050412
  2. AVAPRO [Concomitant]
     Indication: HYPERTENSION
     Route: 048
  3. PRIMIDONE [Concomitant]
     Indication: EPILEPSY
     Dosage: DOSE: 250 MG (1/2 TABLET)
     Route: 048
  4. GLUCOPHAGE [Concomitant]
     Indication: DIABETES MELLITUS
     Route: 048
  5. FOLIC ACID [Concomitant]
     Route: 048
  6. SINEMET CR [Concomitant]
     Dosage: DOSE: 100/25
     Route: 048
  7. DILANTIN [Concomitant]
     Indication: EPILEPSY
     Route: 048
  8. PRAVACHOL [Concomitant]
     Indication: BLOOD CHOLESTEROL INCREASED
     Route: 048
  9. ASPIRIN [Concomitant]
     Route: 048
  10. ACEBUTOLOL [Concomitant]
     Route: 048
  11. AVELOX [Concomitant]
     Indication: INFECTION
     Route: 048
     Dates: start: 20050404, end: 20050406
  12. PENTA-3B [Concomitant]
     Indication: VITAMIN SUPPLEMENTATION
     Dosage: DOSE: B1/B6/B12 (250MG/125 MG/250 UG)
     Route: 048
  13. VITALUX [Concomitant]
     Indication: VITAMIN SUPPLEMENTATION
     Dosage: DOSE: 1 TABLET
     Route: 048
  14. VITAMIN E [Concomitant]
     Indication: VITAMIN SUPPLEMENTATION
     Dosage: DOSE: 400 U (DIE)
     Route: 048

REACTIONS (4)
  - DIZZINESS [None]
  - HYPONATRAEMIA [None]
  - INAPPROPRIATE ANTIDIURETIC HORMONE SECRETION [None]
  - LOSS OF CONSCIOUSNESS [None]
